FAERS Safety Report 4869691-5 (Version None)
Quarter: 2005Q4

REPORT INFORMATION
  Report Type: 
  Country: None (occurrence: None)
  Receive Date: 20051223
  Receipt Date: 20051216
  Transmission Date: 20060501
  Serious: Yes (Congenital Anomaly, Other)
  Sender: FDA-Public Use
  Company Number: FRWYE241816DEC05

PATIENT

DRUGS (1)
  1. EFFEXOR [Suspect]
     Route: 064

REACTIONS (5)
  - ADACTYLY [None]
  - DRUG EXPOSURE DURING PREGNANCY [None]
  - FINGER HYPOPLASIA [None]
  - SYNDACTYLY [None]
  - TALIPES [None]
